FAERS Safety Report 6873092-8 (Version None)
Quarter: 2010Q3

REPORT INFORMATION
  Report Type: 
  Country: None (occurrence: None)
  Receive Date: 20100723
  Receipt Date: 20090324
  Transmission Date: 20110219
  Serious: Yes (Other)
  Sender: FDA-Public Use
  Company Number: US-PFIZER INC-2008095066

PATIENT
  Sex: Female
  Weight: 119.27 kg

DRUGS (6)
  1. CHANTIX [Suspect]
     Indication: SMOKING CESSATION THERAPY
     Dosage: UNK
     Dates: start: 20080101, end: 20080101
  2. CELEXA [Concomitant]
     Dosage: 40 MG, 1X/DAY
  3. TYLENOL [Concomitant]
     Dosage: UNK
  4. ALEVE (CAPLET) [Concomitant]
     Dosage: UNK
  5. FLEXERIL [Concomitant]
     Dosage: 10 MG, 3X/DAY, AS NEEDED
  6. LORAZEPAM [Concomitant]
     Dosage: UNK

REACTIONS (7)
  - FEELING ABNORMAL [None]
  - INSOMNIA [None]
  - MALAISE [None]
  - MENTAL DISORDER [None]
  - SUICIDAL IDEATION [None]
  - THINKING ABNORMAL [None]
  - UNEVALUABLE EVENT [None]
